FAERS Safety Report 12084607 (Version 3)
Quarter: 2018Q1

REPORT INFORMATION
  Report Type: Spontaneous
  Country: US (occurrence: US)
  Receive Date: 20160217
  Receipt Date: 20180316
  Transmission Date: 20180508
  Serious: Yes (Hospitalization, Disabling)
  Sender: FDA-Public Use
  Company Number: US-ENDO PHARMACEUTICALS INC.-2016-001157

PATIENT
  Age: 39 Year
  Sex: Male
  Weight: 117.91 kg

DRUGS (5)
  1. TESTOSTERONE. [Suspect]
     Active Substance: TESTOSTERONE
     Indication: ANDROGEN REPLACEMENT THERAPY
     Dosage: UNK UNKNOWN, UNKNOWN
     Route: 065
     Dates: start: 201210
  2. DELATESTRYL [Suspect]
     Active Substance: TESTOSTERONE ENANTHATE
     Dosage: INJECTION ONCE A MONTH INITIALLY AT DOCTOR^S OFFICE, AND THEN SELF-ADMINISTERED INJECTIONS APPROXIMA
     Route: 030
     Dates: start: 2008, end: 2009
  3. TESTIM [Suspect]
     Active Substance: TESTOSTERONE
     Indication: ANDROGEN REPLACEMENT THERAPY
     Dosage: UNK UNKNOWN, DAILY
     Route: 062
     Dates: start: 201210, end: 201310
  4. DELATESTRYL [Suspect]
     Active Substance: TESTOSTERONE ENANTHATE
     Indication: ANDROGEN REPLACEMENT THERAPY
     Dosage: INJECTION ONCE A MONTH INITIALLY AT DOCTOR OFFICE, AND THEN SELF-ADMINISTERED INJECTIONS APPROXIMA
     Route: 030
     Dates: start: 2008, end: 2009
  5. AXIRON [Suspect]
     Active Substance: TESTOSTERONE
     Indication: ANDROGEN REPLACEMENT THERAPY
     Dosage: APPLIED UNDER THE ARM ONCE A DAY
     Route: 065
     Dates: start: 201402

REACTIONS (3)
  - Coronary artery disease [Not Recovered/Not Resolved]
  - Acute myocardial infarction [Not Recovered/Not Resolved]
  - Fatigue [Not Recovered/Not Resolved]

NARRATIVE: CASE EVENT DATE: 20140213
